FAERS Safety Report 7209754 (Version 3)
Quarter: 2013Q3

REPORT INFORMATION
  Report Type: Spontaneous
  Country: US (occurrence: None)
  Receive Date: 20091124
  Receipt Date: 20130828
  Transmission Date: 20140515
  Serious: Yes (Hospitalization, Other)
  Sender: FDA-Public Use
  Company Number: JPI-P-006085

PATIENT
  Age: 45 Year
  Sex: Female
  Weight: 56.7 kg

DRUGS (6)
  1. XYREM [Suspect]
     Indication: CATAPLEXY
     Dosage: 4.5 GM (2.25 GM, 2 IN 1 D), ORAL, 9 GM (4.5 GM, 2 IN 1 D), ORAL
     Route: 048
     Dates: start: 20050413, end: 20061128
  2. ONDANSETRON [Concomitant]
  3. LEVOTHYROXINE SODIUM [Concomitant]
  4. NORTRIPTYLINE HYDROCHLORIDE [Concomitant]
  5. ALPRAZOLAM [Concomitant]
  6. OXYCODONE HYDROCHLORIDE [Concomitant]

REACTIONS (4)
  - Pancreatitis chronic [None]
  - Blood pressure increased [None]
  - Headache [None]
  - Nausea [None]
